FAERS Safety Report 19484616 (Version 1)
Quarter: 2021Q3

REPORT INFORMATION
  Report Type: Spontaneous
  Country: US (occurrence: US)
  Receive Date: 20210702
  Receipt Date: 20210702
  Transmission Date: 20211014
  Serious: Yes (Hospitalization)
  Sender: FDA-Public Use
  Company Number: US-JNJFOC-20210660497

PATIENT
  Age: 50 Year
  Sex: Female
  Weight: 190 kg

DRUGS (1)
  1. XARELTO [Suspect]
     Active Substance: RIVAROXABAN
     Indication: EMBOLISM VENOUS
     Route: 048
     Dates: start: 20210607, end: 20210623

REACTIONS (1)
  - Postmenopausal haemorrhage [Unknown]

NARRATIVE: CASE EVENT DATE: 20210607
